FAERS Safety Report 17628221 (Version 1)
Quarter: 2020Q2

REPORT INFORMATION
  Report Type: Spontaneous
  Country: FR (occurrence: FR)
  Receive Date: 20200406
  Receipt Date: 20200406
  Transmission Date: 20200713
  Serious: Yes (Hospitalization, Other)
  Sender: FDA-Public Use
  Company Number: FR-AUROBINDO-AUR-APL-2020-016330

PATIENT
  Age: 30 Year
  Sex: Male

DRUGS (1)
  1. AMIODARONE [Suspect]
     Active Substance: AMIODARONE
     Indication: PRODUCT USED FOR UNKNOWN INDICATION
     Dosage: 10800 MILLIGRAM, ONCE A DAY
     Route: 048
     Dates: start: 20120716

REACTIONS (4)
  - Hypotension [Recovered/Resolved]
  - Metabolic disorder [Recovered/Resolved]
  - Atrioventricular block complete [Recovered/Resolved]
  - Disturbance in attention [Recovered/Resolved]

NARRATIVE: CASE EVENT DATE: 20120716
